FAERS Safety Report 20841085 (Version 1)
Quarter: 2022Q2

REPORT INFORMATION
  Report Type: Spontaneous
  Country: US (occurrence: US)
  Receive Date: 20220517
  Receipt Date: 20220517
  Transmission Date: 20220721
  Serious: No
  Sender: FDA-Public Use
  Company Number: US-PFIZER INC-202200064092

PATIENT
  Age: 52 Year
  Sex: Female
  Weight: 58.97 kg

DRUGS (2)
  1. LIOTHYRONINE SODIUM [Suspect]
     Active Substance: LIOTHYRONINE SODIUM
     Indication: Thyroid disorder
     Dosage: UNK
  2. LIOTHYRONINE SODIUM [Suspect]
     Active Substance: LIOTHYRONINE SODIUM
     Dosage: 5 UG

REACTIONS (4)
  - Therapeutic product effect incomplete [Unknown]
  - Mood altered [Unknown]
  - Malaise [Unknown]
  - Drug intolerance [Unknown]
